FAERS Safety Report 12081884 (Version 1)
Quarter: 2016Q1

REPORT INFORMATION
  Report Type: Spontaneous
  Country: CA (occurrence: CA)
  Receive Date: 20160216
  Receipt Date: 20160216
  Transmission Date: 20160526
  Serious: Yes (Other)
  Sender: FDA-Public Use
  Company Number: CA-UCBSA-2016005536

PATIENT
  Sex: Male

DRUGS (2)
  1. PROPAFENON [Concomitant]
     Active Substance: PROPAFENONE
     Indication: ARRHYTHMIA
  2. VIMPAT [Suspect]
     Active Substance: LACOSAMIDE
     Indication: PRODUCT USED FOR UNKNOWN INDICATION
     Dosage: UNK

REACTIONS (2)
  - Syncope [Unknown]
  - Atrioventricular block [Unknown]
